FAERS Safety Report 10785372 (Version 2)
Quarter: 2015Q1

REPORT INFORMATION
  Report Type: Spontaneous
  Country: CA (occurrence: None)
  Receive Date: 20150209
  Receipt Date: 20150223
  Transmission Date: 20150721
  Serious: Yes (Death, Life-Threatening, Hospitalization)
  Sender: FDA-Public Use
  Company Number: CA-MDCO-13-00058

PATIENT
  Age: 88 Year
  Sex: Male
  Weight: 65 kg

DRUGS (1)
  1. BIVALIRUDIN [Suspect]
     Active Substance: BIVALIRUDIN
     Indication: AORTIC VALVE REPLACEMENT
     Dosage: INTRA-ARTERIAL BOLUS
     Dates: start: 20131122, end: 20131122

REACTIONS (23)
  - Haemoglobin decreased [None]
  - Post procedural complication [None]
  - Nephropathy toxic [None]
  - Vascular access complication [None]
  - Supraventricular tachycardia [None]
  - Abdominal sepsis [None]
  - Disease recurrence [None]
  - Post procedural haematoma [None]
  - Drug effect decreased [None]
  - Vascular pseudoaneurysm [None]
  - Gastrointestinal necrosis [None]
  - Intestinal ischaemia [None]
  - White blood cell count decreased [None]
  - Acute kidney injury [None]
  - Ventricular tachycardia [None]
  - Colitis [None]
  - Pneumonia [None]
  - Pneumatosis intestinalis [None]
  - Thrombosis [None]
  - Procedural haemorrhage [None]
  - Intestinal infarction [None]
  - Blood pressure decreased [None]
  - Haematocrit decreased [None]

NARRATIVE: CASE EVENT DATE: 20131122
